FAERS Safety Report 10931252 (Version 1)
Quarter: 2015Q1

REPORT INFORMATION
  Report Type: Spontaneous
  Country: US (occurrence: None)
  Receive Date: 20150317
  Receipt Date: 20150317
  Transmission Date: 20150721
  Serious: Yes (Life-Threatening)
  Sender: FDA-Public Use
  Company Number: 2779996

PATIENT
  Age: 68 Year
  Sex: Male

DRUGS (8)
  1. PROPOFOL FRESENIUS [Suspect]
     Active Substance: PROPOFOL
     Indication: INDUCTION OF ANAESTHESIA
     Route: 040
     Dates: start: 20150212, end: 20150212
  2. RILMENIDINE [Concomitant]
     Active Substance: RILMENIDINE
  3. SUFENTA [Suspect]
     Active Substance: SUFENTANIL CITRATE
     Indication: INDUCTION OF ANAESTHESIA
     Route: 040
     Dates: start: 20150212, end: 20150212
  4. CEFUROXIME. [Suspect]
     Active Substance: CEFUROXIME
     Indication: PRODUCT USED FOR UNKNOWN INDICATION
     Route: 040
     Dates: start: 20150212, end: 20150212
  5. XYLOCAINE VISCOUS [Suspect]
     Active Substance: LIDOCAINE HYDROCHLORIDE
     Indication: INDUCTION OF ANAESTHESIA
     Route: 037
     Dates: start: 20150212, end: 20150212
  6. ZANIDIP [Concomitant]
     Active Substance: LERCANIDIPINE HYDROCHLORIDE
  7. SYMBICORT [Concomitant]
     Active Substance: BUDESONIDE\FORMOTEROL FUMARATE DIHYDRATE
  8. ATRACURIUM BESILATE [Suspect]
     Active Substance: ATRACURIUM BESYLATE
     Indication: INDUCTION OF ANAESTHESIA
     Route: 040
     Dates: start: 20150212, end: 20150212

REACTIONS (4)
  - Bronchospasm [None]
  - Anaphylactic shock [None]
  - Generalised erythema [None]
  - Salivary hypersecretion [None]

NARRATIVE: CASE EVENT DATE: 20150212
